FAERS Safety Report 19652829 (Version 5)
Quarter: 2022Q3

REPORT INFORMATION
  Report Type: Report from Study
  Country: US (occurrence: US)
  Receive Date: 20210803
  Receipt Date: 20220912
  Transmission Date: 20221027
  Serious: Yes (Hospitalization)
  Sender: FDA-Public Use
  Company Number: NVSC2021US160368

PATIENT
  Age: 36 Year
  Sex: Female

DRUGS (1)
  1. KESIMPTA [Suspect]
     Active Substance: OFATUMUMAB
     Indication: Multiple sclerosis
     Dosage: UNK
     Route: 065
     Dates: start: 20220407

REACTIONS (12)
  - Anxiety [Unknown]
  - Chest pain [Unknown]
  - Flushing [Unknown]
  - Peripheral coldness [Unknown]
  - Bladder disorder [Unknown]
  - Vertigo [Unknown]
  - Peroneal nerve palsy [Unknown]
  - Fall [Unknown]
  - Temperature intolerance [Unknown]
  - Sensitivity to weather change [Unknown]
  - Fatigue [Unknown]
  - Headache [Unknown]

NARRATIVE: CASE EVENT DATE: 20220510
